FAERS Safety Report 8159665-3 (Version None)
Quarter: 2012Q1

REPORT INFORMATION
  Report Type: 
  Country: None (occurrence: None)
  Receive Date: 20120223
  Receipt Date: 20120213
  Transmission Date: 20120608
  Serious: Yes (Death, Hospitalization, Other)
  Sender: FDA-Public Use
  Company Number: US-ACTELION-A-US2012-59432

PATIENT

DRUGS (21)
  1. ENOXAPARIN [Concomitant]
  2. ALBUTEROL [Concomitant]
  3. SENNA [Concomitant]
  4. LORAZEPAM [Concomitant]
  5. TEMAZEPAM [Concomitant]
  6. BISACODYL [Concomitant]
  7. MILK OF MAGNESIA TAB [Concomitant]
  8. ACETAMINOPHEN [Concomitant]
  9. TRACLEER [Suspect]
     Indication: PULMONARY ARTERIAL HYPERTENSION
     Dosage: 125 MG, BID
     Route: 048
     Dates: start: 20080326
  10. REVATIO [Concomitant]
  11. SODIUM PHOSPHATES [Concomitant]
  12. PANTOPRAZOLE [Concomitant]
  13. QUETIAPINE [Concomitant]
  14. DOCUSATE CALCIUM [Concomitant]
  15. NICOTINE [Concomitant]
  16. MULTI-VITAMIN [Concomitant]
  17. ACETAMINOPHEN AND HYDROCODONE BITARTRATE [Concomitant]
  18. PREDNISONE TAB [Concomitant]
  19. MORPHINE [Concomitant]
  20. FLUTICASONE PROPIONATE [Concomitant]
  21. LACTOBACILLUS [Concomitant]

REACTIONS (5)
  - BASAL CELL CARCINOMA [None]
  - SURGERY [None]
  - HAEMOPTYSIS [None]
  - METASTASES TO SKIN [None]
  - ASTHENIA [None]
